FAERS Safety Report 13653578 (Version 1)
Quarter: 2017Q2

REPORT INFORMATION
  Report Type: Spontaneous
  Country: US (occurrence: US)
  Receive Date: 20170614
  Receipt Date: 20170614
  Transmission Date: 20170830
  Serious: No
  Sender: FDA-Public Use
  Company Number: US-ROCHE-1300024

PATIENT
  Sex: Male

DRUGS (6)
  1. XELODA [Suspect]
     Active Substance: CAPECITABINE
     Indication: METASTASES TO LIVER
     Dosage: 2 TABLETS BY MOUTH BID 14 DAYS ON 7 DAYS OFF
     Route: 065
     Dates: start: 20131022
  2. XELODA [Suspect]
     Active Substance: CAPECITABINE
     Indication: METASTASES TO BONE MARROW
  3. ZYTIGA [Concomitant]
     Active Substance: ABIRATERONE ACETATE
  4. XELODA [Suspect]
     Active Substance: CAPECITABINE
     Indication: BONE CANCER
  5. XELODA [Suspect]
     Active Substance: CAPECITABINE
     Indication: METASTASIS
  6. PREDNISONE. [Concomitant]
     Active Substance: PREDNISONE

REACTIONS (6)
  - Diarrhoea [Unknown]
  - White blood cell count increased [Unknown]
  - Fatigue [Not Recovered/Not Resolved]
  - Dry skin [Unknown]
  - Decreased appetite [Not Recovered/Not Resolved]
  - Dysgeusia [Not Recovered/Not Resolved]
